FAERS Safety Report 13622210 (Version 1)
Quarter: 2017Q2

REPORT INFORMATION
  Report Type: Spontaneous
  Country: US (occurrence: US)
  Receive Date: 20170607
  Receipt Date: 20170607
  Transmission Date: 20170830
  Serious: No
  Sender: FDA-Public Use
  Company Number: US-ROCHE-700392

PATIENT
  Age: 61 Year
  Sex: Male
  Weight: 79 kg

DRUGS (9)
  1. INSULIN [Concomitant]
     Active Substance: INSULIN NOS
     Route: 065
  2. ABACAVIR. [Concomitant]
     Active Substance: ABACAVIR
     Route: 065
  3. MARAVIROC [Concomitant]
     Active Substance: MARAVIROC
     Route: 065
  4. FUZEON [Suspect]
     Active Substance: ENFUVIRTIDE
     Indication: HIV INFECTION
     Dosage: ROUTE: SUBCUTANEOUS
     Route: 050
     Dates: start: 200812, end: 201004
  5. FUZEON [Suspect]
     Active Substance: ENFUVIRTIDE
     Dosage: ROUTE: INTRAMUSCULAR
     Route: 050
  6. LAMIVUDINE. [Concomitant]
     Active Substance: LAMIVUDINE
     Route: 065
  7. PRAVASTATIN. [Concomitant]
     Active Substance: PRAVASTATIN
     Route: 065
  8. ETRAVIRINE [Concomitant]
     Active Substance: ETRAVIRINE
     Route: 065
  9. FENOFIBRATE. [Concomitant]
     Active Substance: FENOFIBRATE
     Route: 065

REACTIONS (3)
  - No adverse event [Unknown]
  - Injection site mass [Recovering/Resolving]
  - Wrong technique in product usage process [Unknown]
